FAERS Safety Report 7834996-2 (Version None)
Quarter: 2011Q4

REPORT INFORMATION
  Report Type: 
  Country: None (occurrence: None)
  Receive Date: 20111020
  Receipt Date: 20110926
  Transmission Date: 20120403
  Serious: Yes (Other)
  Sender: FDA-Public Use
  Company Number: FK201102042

PATIENT
  Age: 71 Year
  Sex: Male

DRUGS (3)
  1. VANCOMYCIN HYCHLORIDE [Suspect]
     Indication: PARASPINAL ABSCESS
  2. PIPERACILLIN AND TAZOBACTAM [Suspect]
     Indication: PARASPINAL ABSCESS
  3. MEROPENEM (MANUFACTURER UNKNOWN) (MEROPENEM) (MEROPENEM) [Concomitant]
     Indication: PARASPINAL ABSCESS

REACTIONS (2)
  - TYPE IV HYPERSENSITIVITY REACTION [None]
  - DRUG RASH WITH EOSINOPHILIA AND SYSTEMIC SYMPTOMS [None]
